FAERS Safety Report 9357046 (Version 1)
Quarter: 2013Q2

REPORT INFORMATION
  Report Type: Spontaneous
  Country: US (occurrence: None)
  Receive Date: 20130617
  Receipt Date: 20130617
  Transmission Date: 20140414
  Serious: Yes (Other)
  Sender: FDA-Public Use
  Company Number: AMAG201300095

PATIENT
  Age: 65 Year
  Sex: Female

DRUGS (2)
  1. FERAHEME (FERUMOXYTOL) INJECTION, 510MG [Suspect]
     Indication: ANAEMIA
     Dosage: SINGLE
     Route: 042
     Dates: start: 20130601, end: 20130601
  2. FERAHEME (FERUMOXYTOL) INJECTION, 510MG [Suspect]
     Indication: PREOPERATIVE CARE
     Dosage: SINGLE
     Route: 042
     Dates: start: 20130601, end: 20130601

REACTIONS (3)
  - Dyspnoea [None]
  - Headache [None]
  - Discomfort [None]
